FAERS Safety Report 10198022 (Version 1)
Quarter: 2014Q2

REPORT INFORMATION
  Report Type: Spontaneous
  Country: US (occurrence: US)
  Receive Date: 20140527
  Receipt Date: 20140527
  Transmission Date: 20141212
  Serious: Yes (Death, Hospitalization)
  Sender: FDA-Public Use
  Company Number: US-B.I. PHARMACEUTICALS,INC./RIDGEFIELD-2014-BI-23178BP

PATIENT
  Sex: Female

DRUGS (1)
  1. PRADAXA [Suspect]
     Indication: ATRIAL FIBRILLATION
     Route: 065
     Dates: start: 20111214

REACTIONS (6)
  - Haemorrhage [Fatal]
  - Rectal haemorrhage [Unknown]
  - Haematochezia [Unknown]
  - Asthenia [Unknown]
  - Swelling [Unknown]
  - Dyspnoea [Unknown]
